FAERS Safety Report 9513971 (Version 1)
Quarter: 2013Q3

REPORT INFORMATION
  Report Type: Spontaneous
  Country: US (occurrence: US)
  Receive Date: 20130910
  Receipt Date: 20130910
  Transmission Date: 20140515
  Serious: No
  Sender: FDA-Public Use
  Company Number: US-UPSHER-SMITH LABORATORIES, INC.-12002062

PATIENT
  Age: 57 Year
  Sex: Female

DRUGS (3)
  1. OXYBUTYNIN CHLORIDE [Suspect]
     Indication: BLADDER SPASM
     Dosage: 5 MG, BID
     Route: 048
     Dates: start: 201207, end: 201207
  2. AMPYRA [Suspect]
     Indication: MULTIPLE SCLEROSIS
     Dosage: 10 MG, BID
     Route: 048
     Dates: start: 201111
  3. TYSABRI [Concomitant]
     Dosage: UNK

REACTIONS (3)
  - Chest pain [Recovered/Resolved]
  - Urine flow decreased [Recovered/Resolved]
  - Abdominal discomfort [Recovered/Resolved]
